FAERS Safety Report 24400504 (Version 1)
Quarter: 2024Q4

REPORT INFORMATION
  Report Type: Spontaneous
  Country: US (occurrence: US)
  Receive Date: 20241005
  Receipt Date: 20241005
  Transmission Date: 20250114
  Serious: No
  Sender: CSL BEHRING
  Company Number: US-BEH-2024179349

PATIENT
  Age: 31 Year
  Sex: Female

DRUGS (1)
  1. HIZENTRA [Suspect]
     Active Substance: HUMAN IMMUNOGLOBULIN G
     Route: 065

REACTIONS (5)
  - Infusion site inflammation [Unknown]
  - Infusion site erythema [Unknown]
  - Infusion site induration [Unknown]
  - Infusion site pruritus [Unknown]
  - Food intolerance [Unknown]

NARRATIVE: CASE EVENT DATE: 20240922
